FAERS Safety Report 25786200 (Version 4)
Quarter: 2025Q4

REPORT INFORMATION
  Report Type: Spontaneous
  Country: EU (occurrence: EU)
  Receive Date: 20250910
  Receipt Date: 20251010
  Transmission Date: 20260119
  Serious: Yes (Hospitalization, Other)
  Sender: TAKEDA
  Company Number: EU-JNJFOC-20250907129

PATIENT
  Age: 47 Year
  Sex: Female

DRUGS (13)
  1. BORTEZOMIB [Suspect]
     Active Substance: BORTEZOMIB
     Indication: Plasma cell myeloma refractory
     Dosage: UNK
  2. DEXAMETHASONE [Suspect]
     Active Substance: DEXAMETHASONE
     Indication: Plasma cell myeloma refractory
     Dosage: UNK
  3. ACETAMINOPHEN [Suspect]
     Active Substance: ACETAMINOPHEN
     Indication: Bone pain
     Dosage: UNK
  4. TOLODODEKIN ALFA [Suspect]
     Active Substance: TOLODODEKIN ALFA
     Indication: Plasma cell myeloma refractory
     Dosage: UNK
  5. TECLISTAMAB [Suspect]
     Active Substance: TECLISTAMAB
     Indication: Plasma cell myeloma refractory
     Dosage: UNK UNK, MONTHLY
  6. CARFILZOMIB [Suspect]
     Active Substance: CARFILZOMIB
     Indication: Plasma cell myeloma refractory
     Dosage: UNK
  7. SELINEXOR [Suspect]
     Active Substance: SELINEXOR
     Indication: Plasma cell myeloma refractory
     Dosage: UNK
  8. LENALIDOMIDE [Suspect]
     Active Substance: LENALIDOMIDE
     Indication: Plasma cell myeloma refractory
     Dosage: UNK
  9. LENALIDOMIDE [Suspect]
     Active Substance: LENALIDOMIDE
     Indication: Renal impairment
  10. VENETOCLAX [Suspect]
     Active Substance: VENETOCLAX
     Indication: Plasma cell myeloma refractory
     Dosage: 400 MILLIGRAM
  11. VENETOCLAX [Suspect]
     Active Substance: VENETOCLAX
     Dosage: 400 MILLIGRAM
  12. VENETOCLAX [Suspect]
     Active Substance: VENETOCLAX
     Dosage: UNK
  13. CYCLOPHOSPHAMIDE [Suspect]
     Active Substance: CYCLOPHOSPHAMIDE
     Indication: Plasma cell myeloma refractory
     Dosage: UNK

REACTIONS (8)
  - Plasma cell myeloma refractory [Unknown]
  - Hypogammaglobulinaemia [Unknown]
  - Cytokine release syndrome [Recovered/Resolved]
  - Renal impairment [Recovering/Resolving]
  - Drug ineffective [Recovering/Resolving]
  - Upper respiratory tract infection [Unknown]
  - Off label use [Unknown]
  - Drug resistance [Unknown]
